FAERS Safety Report 12570659 (Version 2)
Quarter: 2016Q3

REPORT INFORMATION
  Report Type: Spontaneous
  Country: US (occurrence: US)
  Receive Date: 20160719
  Receipt Date: 20160728
  Transmission Date: 20161109
  Serious: No
  Sender: FDA-Public Use
  Company Number: US-PFIZER INC-2016348567

PATIENT
  Age: 68 Year
  Sex: Male
  Weight: 88.45 kg

DRUGS (1)
  1. ZOLOFT [Suspect]
     Active Substance: SERTRALINE HYDROCHLORIDE
     Indication: BRUXISM
     Dosage: 50 MG, UNK

REACTIONS (6)
  - Agitation [Unknown]
  - Affect lability [Unknown]
  - Irritability [Unknown]
  - Anger [Recovered/Resolved]
  - Product use issue [Unknown]
  - Dysphoria [Unknown]

NARRATIVE: CASE EVENT DATE: 20160713
